FAERS Safety Report 6611059-5 (Version None)
Quarter: 2010Q1

REPORT INFORMATION
  Report Type: 
  Country: None (occurrence: None)
  Receive Date: 20100303
  Receipt Date: 20100218
  Transmission Date: 20100710
  Serious: Yes (Hospitalization)
  Sender: FDA-Public Use
  Company Number: GR-RANBAXY-2010RR-31437

PATIENT
  Age: 66 Year
  Sex: Female

DRUGS (2)
  1. CIPROFLOXACIN [Suspect]
     Indication: PYELONEPHRITIS ACUTE
     Dosage: 1000 MG, UNK
  2. LEVOTHYROXINE SODIUM [Suspect]
     Indication: THYROIDECTOMY
     Dosage: 150 UG, UNK

REACTIONS (6)
  - DRUG INTERACTION [None]
  - HYPERTHYROIDISM [None]
  - IATROGENIC INJURY [None]
  - OVERDOSE [None]
  - PYELONEPHRITIS ACUTE [None]
  - STEVENS-JOHNSON SYNDROME [None]
